FAERS Safety Report 25061561 (Version 1)
Quarter: 2025Q1

REPORT INFORMATION
  Report Type: Spontaneous
  Country: FR (occurrence: FR)
  Receive Date: 20250311
  Receipt Date: 20250311
  Transmission Date: 20250409
  Serious: Yes (Hospitalization)
  Sender: JOHNSON AND JOHNSON
  Company Number: None

PATIENT
  Age: 4 Year
  Sex: Male
  Weight: 16.3 kg

DRUGS (3)
  1. RISPERDAL [Suspect]
     Active Substance: RISPERIDONE
     Indication: Toxicity to various agents
     Route: 048
     Dates: start: 20250222, end: 20250222
  2. RISPERDAL [Suspect]
     Active Substance: RISPERIDONE
  3. RACECADOTRIL [Suspect]
     Active Substance: RACECADOTRIL
     Indication: Toxicity to various agents
     Route: 048
     Dates: start: 20250222, end: 20250222

REACTIONS (5)
  - Stridor [Recovered/Resolved]
  - Salivary hypersecretion [Recovered/Resolved]
  - Somnolence [Recovered/Resolved]
  - Bradypnoea [Recovered/Resolved]
  - Accidental poisoning [Recovered/Resolved]

NARRATIVE: CASE EVENT DATE: 20250222
